FAERS Safety Report 7576470-7 (Version None)
Quarter: 2011Q2

REPORT INFORMATION
  Report Type: 
  Country: None (occurrence: None)
  Receive Date: 20110628
  Receipt Date: 20110105
  Transmission Date: 20111010
  Serious: Yes (Hospitalization, Other)
  Sender: FDA-Public Use
  Company Number: US-BAYER-201038150NA

PATIENT
  Age: 21 Year
  Sex: Female
  Weight: 63.492 kg

DRUGS (14)
  1. YASMIN [Suspect]
     Indication: CONTRACEPTION
     Dosage: UNK UNK, QD
     Route: 048
     Dates: start: 20050210, end: 20090428
  2. ANTIVERT [Concomitant]
  3. CLEOCIN HYDROCHLORIDE [Concomitant]
     Indication: VAGINAL INFECTION
  4. NSAID'S [Concomitant]
     Dosage: UNK UNK, PRN
  5. YASMIN [Suspect]
     Dosage: UNK UNK, QD
     Route: 048
     Dates: start: 20030801, end: 20091001
  6. MACROBID [Concomitant]
     Indication: URINARY TRACT INFECTION
     Dosage: UNK
     Dates: start: 20040405
  7. VIRAL VACCINES [Concomitant]
     Dosage: UNK
  8. LEVAQUIN [Concomitant]
     Indication: URINARY TRACT INFECTION
     Dosage: UNK
     Dates: start: 20040504
  9. MACROBID [Concomitant]
     Indication: VAGINAL INFECTION
  10. CLEOCIN HYDROCHLORIDE [Concomitant]
     Indication: URINARY TRACT INFECTION
     Dosage: UNK
     Dates: start: 20040405
  11. DROSPIRENONE AND ETHINYL ESTRADIOL [Suspect]
     Indication: CONTRACEPTION
     Dosage: UNK
     Dates: start: 20090527, end: 20090917
  12. BACTRIM DS [Concomitant]
     Indication: URINARY TRACT INFECTION
     Dosage: UNK
     Dates: start: 20060417
  13. NAPROSYN [Concomitant]
     Dosage: UNK
     Dates: end: 20080401
  14. YASMIN [Suspect]
     Dosage: UNK
     Dates: start: 20030801

REACTIONS (6)
  - GALLBLADDER DISORDER [None]
  - PANCREATITIS [None]
  - GALLBLADDER CHOLESTEROLOSIS [None]
  - VERTIGO [None]
  - EMOTIONAL DISTRESS [None]
  - CHOLECYSTITIS CHRONIC [None]
